FAERS Safety Report 5908671-5 (Version None)
Quarter: 2008Q3

REPORT INFORMATION
  Report Type: 
  Country: None (occurrence: None)
  Receive Date: 20080929
  Receipt Date: 20080911
  Transmission Date: 20090109
  Serious: Yes (Other)
  Sender: FDA-Public Use
  Company Number: ISPH-2008-0143

PATIENT
  Age: 79 Year
  Sex: Female

DRUGS (3)
  1. AZASITE [Suspect]
     Indication: PROPHYLAXIS
     Dosage: 1 GTT, QD, OPTHALMIC
     Route: 047
  2. NEXIUM (ESOMEPRAZOLE SODIUM) [Concomitant]
  3. VITEYES [Concomitant]

REACTIONS (2)
  - ENDOPHTHALMITIS [None]
  - STAPHYLOCOCCAL INFECTION [None]
